FAERS Safety Report 4992386-4 (Version None)
Quarter: 2006Q2

REPORT INFORMATION
  Report Type: 
  Country: None (occurrence: None)
  Receive Date: 20060502
  Receipt Date: 20060420
  Transmission Date: 20061013
  Serious: Yes (Hospitalization, Other)
  Sender: FDA-Public Use
  Company Number: 2006019690

PATIENT
  Age: 51 Year
  Sex: Female
  Weight: 87.0906 kg

DRUGS (3)
  1. LYRICA [Suspect]
     Indication: NEUROPATHY
     Dosage: 300 MG (150 MG, DAILY), UNKNOWN
     Route: 065
     Dates: start: 20050101
  2. SKELAXIN [Concomitant]
  3. HYDROCODONE BITARTRATE [Concomitant]

REACTIONS (9)
  - AORTIC VALVE INCOMPETENCE [None]
  - DISTURBANCE IN ATTENTION [None]
  - HYPOAESTHESIA [None]
  - MUSCLE SPASMS [None]
  - MYOCARDIAL INFARCTION [None]
  - NEURALGIA [None]
  - PAIN [None]
  - PRURITUS [None]
  - THYROID NEOPLASM [None]
